FAERS Safety Report 9918036 (Version 1)
Quarter: 2014Q1

REPORT INFORMATION
  Report Type: Spontaneous
  Country: US (occurrence: US)
  Receive Date: 20140222
  Receipt Date: 20140222
  Transmission Date: 20141002
  Serious: No
  Sender: FDA-Public Use
  Company Number: US-TEVA-463042USA

PATIENT
  Sex: Male
  Weight: 7.3 kg

DRUGS (2)
  1. PROGLYCEM SUSPENSION [Suspect]
     Indication: HYPERINSULINAEMIA
     Dates: start: 20140212
  2. OMEPRAZOLE [Concomitant]
     Indication: GASTROOESOPHAGEAL REFLUX DISEASE

REACTIONS (1)
  - Oesophagitis [Not Recovered/Not Resolved]
